FAERS Safety Report 18380660 (Version 2)
Quarter: 2020Q4

REPORT INFORMATION
  Report Type: Spontaneous
  Country: NL (occurrence: NL)
  Receive Date: 20201014
  Receipt Date: 20201203
  Transmission Date: 20210114
  Serious: Yes (Other)
  Sender: FDA-Public Use
  Company Number: NL-AMGEN-NLDSP2020163247

PATIENT
  Sex: Female

DRUGS (1)
  1. PROLIA [Suspect]
     Active Substance: DENOSUMAB
     Indication: PRODUCT USED FOR UNKNOWN INDICATION
     Dosage: UNK
     Route: 065
     Dates: start: 2015

REACTIONS (4)
  - Rebound effect [Unknown]
  - Spinal compression fracture [Unknown]
  - Gastrointestinal disorder [Recovered/Resolved]
  - Mental disorder [Unknown]

NARRATIVE: CASE EVENT DATE: 2019
